FAERS Safety Report 9316747 (Version 2)
Quarter: 2013Q2

REPORT INFORMATION
  Report Type: Spontaneous
  Country: US (occurrence: US)
  Receive Date: 20130530
  Receipt Date: 20130530
  Transmission Date: 20140414
  Serious: No
  Sender: FDA-Public Use
  Company Number: US-MYLANLABS-2012S1010993

PATIENT
  Age: 63 Year
  Sex: Female
  Weight: 81.65 kg

DRUGS (3)
  1. ZOLPIDEM TARTRATE TABLETS [Suspect]
     Indication: INSOMNIA
     Route: 048
     Dates: start: 201204
  2. LORTAB [Concomitant]
     Indication: ARTHRALGIA
  3. METFORMIN [Concomitant]
     Indication: DIABETES MELLITUS

REACTIONS (5)
  - Drug effect decreased [Not Recovered/Not Resolved]
  - Initial insomnia [Not Recovered/Not Resolved]
  - Therapeutic response delayed [Not Recovered/Not Resolved]
  - Product substitution issue [None]
  - Product quality issue [None]
